FAERS Safety Report 16190719 (Version 1)
Quarter: 2019Q2

REPORT INFORMATION
  Report Type: Spontaneous
  Country: JP (occurrence: JP)
  Receive Date: 20190412
  Receipt Date: 20190412
  Transmission Date: 20190711
  Serious: Yes (Other)
  Sender: FDA-Public Use
  Company Number: JP-ROCHE-2288655

PATIENT
  Age: 70 Year
  Sex: Female

DRUGS (8)
  1. XOFLUZA [Suspect]
     Active Substance: BALOXAVIR MARBOXIL
     Indication: INFLUENZA
     Route: 048
     Dates: start: 20190105, end: 20190105
  2. EDIROL [Concomitant]
     Active Substance: ELDECALCITOL
     Indication: ILL-DEFINED DISORDER
     Dosage: 0.75 MCG/DAY
     Route: 048
     Dates: start: 20130528
  3. MONTELUKAST [Concomitant]
     Active Substance: MONTELUKAST SODIUM
     Indication: ILL-DEFINED DISORDER
     Route: 048
     Dates: start: 20170227
  4. CAMSHIA [Concomitant]
     Active Substance: AMLODIPINE BESYLATE\CANDESARTAN CILEXETIL
     Indication: ILL-DEFINED DISORDER
     Route: 048
     Dates: start: 20160928
  5. ZOLPIDEM TARTRATE. [Concomitant]
     Active Substance: ZOLPIDEM TARTRATE
     Indication: ILL-DEFINED DISORDER
     Route: 048
     Dates: start: 20160928
  6. CALONAL [Suspect]
     Active Substance: ACETAMINOPHEN
     Indication: INFLUENZA
     Route: 048
     Dates: start: 20190105, end: 20190106
  7. HOKUNALIN [Suspect]
     Active Substance: TULOBUTEROL
     Indication: INFLUENZA
     Route: 062
     Dates: start: 20190105, end: 20190111
  8. ERIZAS [Concomitant]
     Indication: ILL-DEFINED DISORDER
     Route: 065
     Dates: start: 20170620

REACTIONS (3)
  - Drug eruption [Recovered/Resolved]
  - Arrhythmia [Recovered/Resolved]
  - Rash [Recovered/Resolved]

NARRATIVE: CASE EVENT DATE: 20190106
